FAERS Safety Report 10176859 (Version 1)
Quarter: 2014Q2

REPORT INFORMATION
  Report Type: Spontaneous
  Country: US (occurrence: None)
  Receive Date: 20140515
  Receipt Date: 20140515
  Transmission Date: 20141212
  Serious: Yes (Hospitalization)
  Sender: FDA-Public Use
  Company Number: None

PATIENT
  Age: 51 Year
  Sex: Female
  Weight: 60.78 kg

DRUGS (2)
  1. LYSTEDA [Suspect]
     Indication: MENORRHAGIA
     Dosage: 2 PILLS
     Route: 048
     Dates: start: 20140418, end: 20140418
  2. NORETHINDONE [Concomitant]

REACTIONS (3)
  - Headache [None]
  - Dyspnoea [None]
  - Anxiety [None]
